FAERS Safety Report 9685513 (Version 1)
Quarter: 2013Q4

REPORT INFORMATION
  Report Type: Spontaneous
  Country: IT (occurrence: IT)
  Receive Date: 20131113
  Receipt Date: 20131113
  Transmission Date: 20140711
  Serious: Yes (Other)
  Sender: FDA-Public Use
  Company Number: IT-MYLANLABS-2013S1024601

PATIENT
  Age: 62 Year
  Sex: Male

DRUGS (1)
  1. LISINOPRIL DIHYDRATE [Suspect]
     Indication: HYPERTENSION
     Route: 048
     Dates: start: 20130905, end: 20130925

REACTIONS (1)
  - Pharyngeal oedema [Recovering/Resolving]
